FAERS Safety Report 11297683 (Version 1)
Quarter: 2015Q3

REPORT INFORMATION
  Report Type: Spontaneous
  Country: US (occurrence: US)
  Receive Date: 20150722
  Receipt Date: 20150722
  Transmission Date: 20151125
  Serious: No
  Sender: FDA-Public Use
  Company Number: US-ELI_LILLY_AND_COMPANY-US200903007493

PATIENT
  Age: 65 Year
  Sex: Female

DRUGS (1)
  1. SOMATROPIN [Suspect]
     Active Substance: SOMATROPIN
     Dosage: UNK, UNKNOWN

REACTIONS (4)
  - Fatigue [Unknown]
  - Somnolence [Unknown]
  - Nervousness [Unknown]
  - Myalgia [Unknown]
